FAERS Safety Report 7261364-7 (Version None)
Quarter: 2011Q1

REPORT INFORMATION
  Report Type: 
  Country: None (occurrence: None)
  Receive Date: 20110130
  Receipt Date: 20101011
  Transmission Date: 20110831
  Serious: No
  Sender: FDA-Public Use
  Company Number: US-ABBOTT-10P-163-0677405-00

PATIENT
  Age: 9 Year
  Sex: Female

DRUGS (8)
  1. VIT D SUPPLEMENT [Concomitant]
     Indication: PRODUCT USED FOR UNKNOWN INDICATION
  2. OMPRAZOLOLE [Concomitant]
     Indication: PRODUCT USED FOR UNKNOWN INDICATION
  3. CALIUM [Concomitant]
     Indication: PRODUCT USED FOR UNKNOWN INDICATION
  4. HUMIRA [Suspect]
     Indication: COLITIS ULCERATIVE
     Dates: start: 20101007, end: 20101007
  5. HUMIRA [Suspect]
     Dosage: 160MG THEN DAY 15 80MG, DAY 29 40MG, THEN 40 MG EVERY 2 WEEKS
     Dates: start: 20101008, end: 20101008
  6. IRON SUPPLEMENT [Concomitant]
     Indication: PRODUCT USED FOR UNKNOWN INDICATION
  7. MERCAPTURPRINE [Concomitant]
     Indication: PRODUCT USED FOR UNKNOWN INDICATION
  8. PREDNISONE [Concomitant]
     Indication: PRODUCT USED FOR UNKNOWN INDICATION

REACTIONS (2)
  - VOMITING [None]
  - NAUSEA [None]
